FAERS Safety Report 11529100 (Version 2)
Quarter: 2015Q3

REPORT INFORMATION
  Report Type: Spontaneous
  Country: DK (occurrence: DK)
  Receive Date: 20150921
  Receipt Date: 20150921
  Transmission Date: 20151125
  Serious: Yes (Other)
  Sender: FDA-Public Use
  Company Number: DK-ACTAVIS-2015-19583

PATIENT
  Age: 44 Year
  Sex: Male

DRUGS (12)
  1. LITHIUM. [Concomitant]
     Active Substance: LITHIUM
     Indication: PRODUCT USED FOR UNKNOWN INDICATION
     Dosage: 0+0+0+18 MMOL, DAILY
     Route: 065
  2. PREGABALIN (UNKNOWN) [Interacting]
     Active Substance: PREGABALIN
     Dosage: 150+0+0+75 MG, DAILY
     Route: 065
  3. ALCOHOL. [Concomitant]
     Active Substance: ALCOHOL
     Indication: SUBSTANCE ABUSE
     Dosage: UNK
     Route: 065
  4. SERTINDOLE [Concomitant]
     Active Substance: SERTINDOLE
     Indication: PRODUCT USED FOR UNKNOWN INDICATION
     Dosage: 16+0+0+0 MG, DAILY
     Route: 065
  5. PREGABALIN (UNKNOWN) [Interacting]
     Active Substance: PREGABALIN
     Dosage: 75+0+0+75 MG, DAILY
     Route: 065
  6. CLONAZEPAM. [Concomitant]
     Active Substance: CLONAZEPAM
     Indication: PRODUCT USED FOR UNKNOWN INDICATION
     Dosage: 0.5+0+0+0 MG, DAILY
     Route: 065
  7. BUPRENORPHINE (UNKNOWN) [Suspect]
     Active Substance: BUPRENORPHINE
     Indication: SUBSTANCE ABUSE
     Dosage: UNK
     Route: 065
  8. CLONAZEPAM. [Concomitant]
     Active Substance: CLONAZEPAM
     Dosage: 0.5+0+0+0.5 MG, DAILY
     Route: 065
  9. CLOZAPINE (UNKNOWN) [Interacting]
     Active Substance: CLOZAPINE
     Indication: SCHIZOPHRENIA, PARANOID TYPE
     Dosage: 150+0+0+500 MG, DAILY
     Route: 065
  10. PREGABALIN (UNKNOWN) [Interacting]
     Active Substance: PREGABALIN
     Indication: ANXIETY
     Dosage: 225+0+0+75 MG, DAILY
     Route: 065
  11. PREGABALIN (UNKNOWN) [Interacting]
     Active Substance: PREGABALIN
     Dosage: 75 MG, DAILY
     Route: 065
  12. CYCLIZINE (UNKNOWN) [Suspect]
     Active Substance: CYCLIZINE
     Indication: SUBSTANCE ABUSE
     Dosage: UNK
     Route: 065

REACTIONS (10)
  - Syncope [Recovered/Resolved]
  - Drug abuse [Unknown]
  - Seizure [Recovered/Resolved]
  - Depressed level of consciousness [Recovered/Resolved]
  - Foot fracture [Unknown]
  - Off label use [Recovered/Resolved]
  - Drug interaction [Recovered/Resolved]
  - Wound [Unknown]
  - Drug level above therapeutic [Recovered/Resolved]
  - Fall [Recovered/Resolved]
